FAERS Safety Report 8125448-3 (Version None)
Quarter: 2012Q1

REPORT INFORMATION
  Report Type: 
  Country: None (occurrence: None)
  Receive Date: 20120209
  Receipt Date: 20120126
  Transmission Date: 20120608
  Serious: Yes (Hospitalization, Other)
  Sender: FDA-Public Use
  Company Number: JP-NOVOPROD-343068

PATIENT
  Age: 34 Year
  Sex: Female
  Weight: 63 kg

DRUGS (6)
  1. NOVORAPID CHU FLEXPEN [Suspect]
     Indication: TYPE 1 DIABETES MELLITUS
     Dosage: 17 U, QD
     Route: 058
     Dates: start: 20100311
  2. PENFILL R CHU [Suspect]
     Indication: TYPE 1 DIABETES MELLITUS
     Dosage: 26 U, QD
     Route: 058
     Dates: start: 19930301, end: 20091101
  3. NOVOLIN R [Suspect]
     Indication: TYPE 1 DIABETES MELLITUS
     Dosage: 31-29 U/QD
     Route: 058
     Dates: start: 20091101, end: 20100310
  4. PENFILL N CHU [Suspect]
     Indication: TYPE 1 DIABETES MELLITUS
     Dosage: 24 U, QD
     Route: 058
     Dates: start: 19930301, end: 20090101
  5. NOVOLIN N [Suspect]
     Indication: TYPE 1 DIABETES MELLITUS
     Dosage: 20 U, QD
     Route: 058
     Dates: start: 20091101, end: 20100126
  6. LANTUS [Concomitant]
     Dosage: 18-14 U, QD (SOLOSTAR)
     Route: 058
     Dates: start: 20100127

REACTIONS (5)
  - CONVULSION [None]
  - BLOOD GLUCOSE INCREASED [None]
  - EPILEPSY [None]
  - LOSS OF CONSCIOUSNESS [None]
  - HYPOGLYCAEMIA [None]
